FAERS Safety Report 23994828 (Version 1)
Quarter: 2024Q2

REPORT INFORMATION
  Report Type: Spontaneous
  Country: ES (occurrence: A1)
  Receive Date: 20240620
  Receipt Date: 20240620
  Transmission Date: 20240715
  Serious: Yes (Other)
  Sender: FDA-Public Use
  Company Number: A1-Breckenridge Pharmaceutical, Inc.-2158356

PATIENT

DRUGS (1)
  1. OMEPRAZOLE [Suspect]
     Active Substance: DONEPEZIL HYDROCHLORIDE\OMEPRAZOLE\OMEPRAZOLE MAGNESIUM
     Indication: Gastrooesophageal reflux disease
     Route: 048

REACTIONS (6)
  - Onychomadesis [Recovering/Resolving]
  - Nail disorder [Recovering/Resolving]
  - Nail growth abnormal [Not Recovered/Not Resolved]
  - Granuloma skin [Unknown]
  - Nail discolouration [Recovering/Resolving]
  - Rosacea [Unknown]
